FAERS Safety Report 18122623 (Version 2)
Quarter: 2020Q3

REPORT INFORMATION
  Report Type: Spontaneous
  Country: RO (occurrence: RO)
  Receive Date: 20200807
  Receipt Date: 20200923
  Transmission Date: 20201103
  Serious: Yes (Death, Other)
  Sender: FDA-Public Use
  Company Number: RO-ACCORD-194046

PATIENT
  Age: 70 Year
  Sex: Male

DRUGS (5)
  1. DEXAMETHASONE. [Suspect]
     Active Substance: DEXAMETHASONE
     Indication: DIFFUSE LARGE B-CELL LYMPHOMA
     Dosage: CYCLIC (WITH A PROPHYLACTIC GRANULOCYTE GROWTH FACTOR)
  2. FILGRASTIM/GRANULOCYTE COLONY STIMULATING/LENOGRASTIM [Concomitant]
     Active Substance: GRANULOCYTE COLONY-STIMULATING FACTOR NOS
     Indication: PROPHYLAXIS
  3. CYTARABINE/CYTARABINE HYDROCHLORIDE/CYTARABINE OCFOSFATE [Suspect]
     Active Substance: CYTARABINE
     Indication: DIFFUSE LARGE B-CELL LYMPHOMA
     Dosage: HIGH DOSE
  4. CISPLATIN. [Suspect]
     Active Substance: CISPLATIN
     Indication: DIFFUSE LARGE B-CELL LYMPHOMA
     Dosage: CYCLIC (WITH A PROPHYLACTIC GRANULOCYTE GROWTH FACTOR)
  5. RITUXIMAB. [Suspect]
     Active Substance: RITUXIMAB
     Indication: DIFFUSE LARGE B-CELL LYMPHOMA
     Dosage: CYCLIC (6 COURSES)

REACTIONS (4)
  - Acute kidney injury [Fatal]
  - Cardiac failure [Fatal]
  - Acute myocardial infarction [Fatal]
  - Off label use [Unknown]
